FAERS Safety Report 8245459-7 (Version None)
Quarter: 2012Q1

REPORT INFORMATION
  Report Type: 
  Country: None (occurrence: None)
  Receive Date: 20120329
  Receipt Date: 20120322
  Transmission Date: 20120608
  Serious: Yes (Disabling)
  Sender: FDA-Public Use
  Company Number: JP-MERCK-1203USA03481

PATIENT
  Age: 50 Year
  Sex: Female

DRUGS (4)
  1. FOSAPREPITANT DIMEGLUMINE [Suspect]
     Indication: PROPHYLAXIS OF NAUSEA AND VOMITING
     Route: 042
  2. DOXORUBICIN HCL [Suspect]
     Indication: BREAST CANCER
     Route: 065
  3. ALOXI [Concomitant]
     Route: 065
  4. CYCLOPHOSPHAMIDE [Concomitant]
     Route: 065

REACTIONS (2)
  - INJECTION SITE INDURATION [None]
  - INJECTION SITE EXTRAVASATION [None]
